FAERS Safety Report 26147557 (Version 1)
Quarter: 2025Q4

REPORT INFORMATION
  Report Type: Report from Study
  Country: GB (occurrence: GB)
  Receive Date: 20251211
  Receipt Date: 20251211
  Transmission Date: 20260118
  Serious: Yes (Death)
  Sender: CELLTRION
  Company Number: GB-CELLTRION INC.-2025GB003913

PATIENT

DRUGS (2)
  1. ADALIMUMAB-AATY [Suspect]
     Active Substance: ADALIMUMAB-AATY
     Indication: Rheumatoid arthritis
     Dosage: 40 MG EVERY 3 WEEKS (FROM: 02/2025)/YUFLYMA 40MG FOR INJECTION PENS INJECT ONE PRE-FILLED PEN EVERY
     Route: 058
     Dates: start: 202502
  2. ADALIMUMAB-AATY [Suspect]
     Active Substance: ADALIMUMAB-AATY
     Dosage: 2 X 40 MG PRE-FILLED PEN EVERY TWO WEEKS (THERAPY STOP DATE: DEC 2025)
     Route: 058
     Dates: start: 202407, end: 202512

REACTIONS (2)
  - Death [Fatal]
  - Off label use [Recovering/Resolving]
